FAERS Safety Report 9342956 (Version 1)
Quarter: 2013Q2

REPORT INFORMATION
  Report Type: Spontaneous
  Country: DE (occurrence: DE)
  Receive Date: 20130611
  Receipt Date: 20130611
  Transmission Date: 20140414
  Serious: Yes (Life-Threatening)
  Sender: FDA-Public Use
  Company Number: DE-B.I. PHARMACEUTICALS,INC./RIDGEFIELD-2013-DE-01554DE

PATIENT
  Age: 77 Year
  Sex: Male
  Weight: 82 kg

DRUGS (4)
  1. DABIGATRAN [Suspect]
     Indication: ATRIAL FIBRILLATION
     Dosage: 110 MG
     Route: 048
     Dates: end: 20130326
  2. AMIODARON [Concomitant]
     Indication: ATRIAL FIBRILLATION
     Dosage: 200 MG
     Route: 048
  3. METOHEXAL [Concomitant]
     Indication: ATRIAL FIBRILLATION
     Dosage: 47.5 MG
     Route: 048
  4. EXJADE [Concomitant]
     Indication: IRON OVERLOAD
     Dosage: 500 MG
     Route: 048

REACTIONS (2)
  - Urinary bladder haemorrhage [Recovered/Resolved]
  - Bladder tamponade [Recovered/Resolved]
